FAERS Safety Report 9290281 (Version 2)
Quarter: 2013Q2

REPORT INFORMATION
  Report Type: Spontaneous
  Country: US (occurrence: US)
  Receive Date: 20130515
  Receipt Date: 20130611
  Transmission Date: 20140414
  Serious: No
  Sender: FDA-Public Use
  Company Number: US-ELI_LILLY_AND_COMPANY-US201305001366

PATIENT
  Sex: Male

DRUGS (9)
  1. CYMBALTA [Suspect]
     Indication: DEPRESSION
     Dosage: 30 MG, UNK
     Dates: start: 201211
  2. CYMBALTA [Suspect]
     Dosage: 60 MG, QD
     Dates: start: 201212, end: 20130107
  3. DIAZEPAM [Concomitant]
  4. CLONAZEPAM [Concomitant]
  5. ADDERALL [Concomitant]
  6. OXYCODONE [Concomitant]
  7. ACETYLCYSTEINE [Concomitant]
  8. FEXOFENADINE [Concomitant]
  9. SINGULAIR [Concomitant]

REACTIONS (9)
  - Aspartate aminotransferase increased [Recovered/Resolved]
  - Alanine aminotransferase increased [Recovered/Resolved]
  - Blood alkaline phosphatase increased [Recovered/Resolved]
  - Nausea [Unknown]
  - Vomiting [Unknown]
  - Decreased appetite [Unknown]
  - Arthralgia [Unknown]
  - Fatigue [Unknown]
  - Somnolence [Unknown]
